FAERS Safety Report 8291294-3 (Version None)
Quarter: 2012Q2

REPORT INFORMATION
  Report Type: 
  Country: None (occurrence: None)
  Receive Date: 20120417
  Receipt Date: 20120402
  Transmission Date: 20120825
  Serious: Yes (Hospitalization, Other)
  Sender: FDA-Public Use
  Company Number: IT-ARROW GEN-2012-06152

PATIENT
  Age: 91 Year
  Sex: Female

DRUGS (7)
  1. METFORMINA + GLIBENCLAMIDA [Suspect]
     Indication: TYPE 2 DIABETES MELLITUS
     Dosage: UNK
     Route: 065
  2. BUPRENORPHINE [Suspect]
     Indication: PAIN
     Dosage: UNK
     Route: 062
  3. ENALAPRIL MALEATE [Suspect]
     Indication: HYPERTENSION
     Dosage: 20 MG, DAILY
     Route: 065
  4. NADROPARIN [Suspect]
     Indication: ANTICOAGULANT THERAPY
     Dosage: 3800 UNITS DAILY
     Route: 058
  5. LEVOFLOXACIN [Suspect]
     Indication: BACTERIAL INFECTION
     Dosage: 500 MG, BID
     Route: 048
  6. LANSOPRAZOLE [Suspect]
     Indication: PRODUCT USED FOR UNKNOWN INDICATION
     Dosage: 30 MG, DAILY
     Route: 065
  7. TRAMADOL HCL [Suspect]
     Indication: PAIN
     Dosage: UNK
     Route: 065

REACTIONS (2)
  - HYPOGLYCAEMIA [None]
  - DRUG INTERACTION [None]
